FAERS Safety Report 5206635-0 (Version None)
Quarter: 2006Q4

REPORT INFORMATION
  Report Type: 
  Country: None (occurrence: None)
  Receive Date: 20061026
  Receipt Date: 20060818
  Transmission Date: 20070319
  Serious: No
  Sender: FDA-Public Use
  Company Number: 2006074453

PATIENT
  Sex: Male

DRUGS (1)
  1. LYRICA [Suspect]
     Indication: NEUROPATHY PERIPHERAL
     Dosage: 400 MG (200 MG, 2 IN 1 D)

REACTIONS (2)
  - DIARRHOEA [None]
  - UNEVALUABLE EVENT [None]
